FAERS Safety Report 10471004 (Version 1)
Quarter: 2014Q3

REPORT INFORMATION
  Report Type: Spontaneous
  Country: US (occurrence: None)
  Receive Date: 20140917
  Receipt Date: 20140917
  Transmission Date: 20150326
  Serious: No
  Sender: FDA-Public Use
  Company Number: 2014CT000107

PATIENT
  Age: 49 Year
  Sex: Female

DRUGS (5)
  1. PRANDIN [Concomitant]
     Active Substance: REPAGLINIDE
  2. BUPROPION [Concomitant]
     Active Substance: BUPROPION
  3. GLIMEPIRIDE. [Concomitant]
     Active Substance: GLIMEPIRIDE
  4. ATORVASTATIN [Concomitant]
     Active Substance: ATORVASTATIN
  5. KORLYM [Suspect]
     Active Substance: MIFEPRISTONE
     Indication: CUSHING^S SYNDROME
     Route: 048
     Dates: start: 20140602

REACTIONS (3)
  - Abdominal pain upper [None]
  - Urinary tract infection [None]
  - Fatigue [None]
